FAERS Safety Report 20759850 (Version 3)
Quarter: 2022Q4

REPORT INFORMATION
  Report Type: Report from Study
  Country: CZ (occurrence: CZ)
  Receive Date: 20220427
  Receipt Date: 20221212
  Transmission Date: 20230113
  Serious: Yes (Hospitalization, Other)
  Sender: FDA-Public Use
  Company Number: CZ-GILEAD-2022-0571308

PATIENT
  Age: 40 Year
  Sex: Female

DRUGS (5)
  1. SACITUZUMAB GOVITECAN [Suspect]
     Active Substance: SACITUZUMAB GOVITECAN
     Indication: Triple negative breast cancer
     Dosage: 600 MG, C1D1
     Route: 042
     Dates: start: 20220211
  2. SACITUZUMAB GOVITECAN [Suspect]
     Active Substance: SACITUZUMAB GOVITECAN
     Dosage: 600 MG, C1D8
     Route: 042
     Dates: start: 20220218, end: 20220218
  3. SACITUZUMAB GOVITECAN [Suspect]
     Active Substance: SACITUZUMAB GOVITECAN
     Dosage: 600 UNK
     Route: 042
     Dates: start: 20220315, end: 20220315
  4. SACITUZUMAB GOVITECAN [Suspect]
     Active Substance: SACITUZUMAB GOVITECAN
     Dosage: 480 UNK
     Route: 042
     Dates: start: 20220322, end: 20220322
  5. SACITUZUMAB GOVITECAN [Suspect]
     Active Substance: SACITUZUMAB GOVITECAN
     Dosage: 450 MG
     Route: 042
     Dates: start: 20220405, end: 20220426

REACTIONS (7)
  - Disease progression [Unknown]
  - Febrile neutropenia [Recovered/Resolved]
  - Colitis [Recovered/Resolved]
  - Stomatitis [Recovered/Resolved]
  - COVID-19 [Recovered/Resolved]
  - Anaemia [Unknown]
  - Vertigo [Unknown]

NARRATIVE: CASE EVENT DATE: 20220101
